FAERS Safety Report 6066616-4 (Version None)
Quarter: 2009Q1

REPORT INFORMATION
  Report Type: 
  Country: None (occurrence: None)
  Receive Date: 20090205
  Receipt Date: 20090203
  Transmission Date: 20090719
  Serious: Yes (Other)
  Sender: FDA-Public Use
  Company Number: B0557207A

PATIENT
  Age: 94 Year
  Sex: Male

DRUGS (2)
  1. RELENZA [Suspect]
     Indication: INFLUENZA
     Dosage: 10MG TWICE PER DAY
     Route: 055
     Dates: start: 20090127, end: 20090130
  2. INTRAVENOUS DRIP [Concomitant]
     Indication: PNEUMONIA
     Route: 065

REACTIONS (4)
  - AGGRESSION [None]
  - DELIRIUM [None]
  - DIZZINESS [None]
  - SCREAMING [None]
